FAERS Safety Report 6785296-3 (Version None)
Quarter: 2010Q2

REPORT INFORMATION
  Report Type: 
  Country: None (occurrence: None)
  Receive Date: 20100623
  Receipt Date: 20100615
  Transmission Date: 20101027
  Serious: Yes (Hospitalization, Other)
  Sender: FDA-Public Use
  Company Number: US-BIOGENIDEC-2010BI011984

PATIENT
  Age: 44 Year
  Sex: Female

DRUGS (1)
  1. TYSABRI [Suspect]
     Indication: MULTIPLE SCLEROSIS
     Route: 042
     Dates: start: 20090918

REACTIONS (5)
  - HAEMORRHAGIC DIATHESIS [None]
  - INCREASED TENDENCY TO BRUISE [None]
  - LOSS OF CONTROL OF LEGS [None]
  - PULMONARY EMBOLISM [None]
  - THROMBOSIS [None]
